FAERS Safety Report 7399980-4 (Version None)
Quarter: 2011Q2

REPORT INFORMATION
  Report Type: 
  Country: None (occurrence: None)
  Receive Date: 20110407
  Receipt Date: 20110328
  Transmission Date: 20111010
  Serious: Yes (Hospitalization, Other)
  Sender: FDA-Public Use
  Company Number: FR-JNJFOC-20110311796

PATIENT
  Sex: Female

DRUGS (4)
  1. CORTANCYL [Interacting]
     Indication: RENAL TRANSPLANT
     Route: 048
  2. BELATACEPT [Suspect]
     Indication: RENAL TRANSPLANT
     Route: 042
  3. SPORANOX [Suspect]
     Indication: ASPERGILLOSIS
     Route: 065
  4. CELLCEPT [Suspect]
     Indication: RENAL TRANSPLANT
     Route: 048

REACTIONS (3)
  - RENAL FAILURE ACUTE [None]
  - ANAEMIA [None]
  - DRUG INTERACTION [None]
